FAERS Safety Report 10892034 (Version 3)
Quarter: 2016Q3

REPORT INFORMATION
  Report Type: Spontaneous
  Country: IT (occurrence: GR)
  Receive Date: 20150306
  Receipt Date: 20160908
  Transmission Date: 20161109
  Serious: Yes (Death, Life-Threatening)
  Sender: FDA-Public Use
  Company Number: GR-FRI-1000068567

PATIENT
  Age: 29 Year
  Sex: Male
  Weight: 72 kg

DRUGS (1)
  1. NEBIVOLOL. [Suspect]
     Active Substance: NEBIVOLOL
     Indication: HYPERTROPHIC CARDIOMYOPATHY
     Dosage: 5 MG
     Route: 048
     Dates: start: 201002, end: 20110914

REACTIONS (7)
  - Hypotension [Not Recovered/Not Resolved]
  - Pulmonary congestion [Fatal]
  - Dizziness [Unknown]
  - Hypertrophic cardiomyopathy [Fatal]
  - Off label use [Recovered/Resolved]
  - Pulmonary oedema [Fatal]
  - Presyncope [Not Recovered/Not Resolved]

NARRATIVE: CASE EVENT DATE: 2010
